FAERS Safety Report 7304532-8 (Version None)
Quarter: 2011Q1

REPORT INFORMATION
  Report Type: 
  Country: None (occurrence: None)
  Receive Date: 20110221
  Receipt Date: 20100830
  Transmission Date: 20110831
  Serious: Yes (Other)
  Sender: FDA-Public Use
  Company Number: PHHY2010IT61290

PATIENT
  Age: 46 Year
  Sex: Female

DRUGS (2)
  1. STEROIDS NOS [Concomitant]
  2. IMATINIB [Suspect]
     Indication: ACUTE LYMPHOCYTIC LEUKAEMIA
     Dosage: 600 MG DAILY
     Dates: start: 20091001

REACTIONS (2)
  - CARDIOTOXICITY [None]
  - ELECTROCARDIOGRAM QT PROLONGED [None]
